FAERS Safety Report 24443924 (Version 2)
Quarter: 2024Q4

REPORT INFORMATION
  Report Type: Report from Study
  Country: ZA (occurrence: ZA)
  Receive Date: 20241016
  Receipt Date: 20241017
  Transmission Date: 20250115
  Serious: No
  Sender: ROCHE
  Company Number: ZA-ROCHE-2672354

PATIENT
  Age: 48 Year
  Sex: Male
  Weight: 83.0 kg

DRUGS (10)
  1. MABTHERA [Suspect]
     Active Substance: RITUXIMAB
     Indication: Rheumatoid arthritis
     Dosage: FREQUENCY:INFUSED ON DAY 1 AND DAY 15,REPEAT AFTER 6 MONTHS
     Route: 042
     Dates: start: 20200324
  2. MABTHERA [Suspect]
     Active Substance: RITUXIMAB
     Indication: Interstitial lung disease
     Route: 042
  3. MABTHERA [Suspect]
     Active Substance: RITUXIMAB
     Route: 042
     Dates: start: 201707
  4. RITUXIMAB [Suspect]
     Active Substance: RITUXIMAB
     Indication: Rheumatoid arthritis
     Route: 041
  5. RITUXIMAB [Suspect]
     Active Substance: RITUXIMAB
     Indication: Interstitial lung disease
     Route: 041
  6. METHOTREXATE [Concomitant]
     Active Substance: METHOTREXATE
     Dates: start: 201603
  7. CHLOROQUINE [Concomitant]
     Active Substance: CHLOROQUINE
     Dates: start: 201602
  8. CYCLOSPORINE [Concomitant]
     Active Substance: CYCLOSPORINE
     Route: 048
     Dates: start: 201602
  9. PREDNISONE [Concomitant]
     Active Substance: PREDNISONE
     Dates: start: 2014
  10. PREDNISONE [Concomitant]
     Active Substance: PREDNISONE
     Dates: start: 2014

REACTIONS (8)
  - Haemoglobin increased [Unknown]
  - Blood creatinine increased [Unknown]
  - Off label use [Unknown]
  - Haemoglobin increased [Unknown]
  - Blood creatinine increased [Unknown]
  - White blood cell count increased [Unknown]
  - Off label use [Unknown]
  - Aspartate aminotransferase increased [Unknown]

NARRATIVE: CASE EVENT DATE: 20210817
